FAERS Safety Report 9661158 (Version 2)
Quarter: 2013Q4

REPORT INFORMATION
  Report Type: Spontaneous
  Country: US (occurrence: None)
  Receive Date: 20131030
  Receipt Date: 20131106
  Transmission Date: 20140711
  Serious: Yes (Death, Hospitalization)
  Sender: FDA-Public Use
  Company Number: UTC-036546

PATIENT
  Age: 37 Year
  Sex: Male
  Weight: 84.1 kg

DRUGS (3)
  1. REMODULIN [Suspect]
     Indication: PULMONARY ARTERIAL HYPERTENSION
     Dosage: 131.04 UG/KG (0.091 UG/KG, 1 IN 1 MIN), INTRAVENOUS DRIP?
     Route: 041
     Dates: start: 20110131, end: 2013
  2. ADCIRCA (TADALAFIL) [Concomitant]
  3. TRACLEER (BOSENTAN) [Concomitant]

REACTIONS (5)
  - Cardiac failure [None]
  - Renal failure [None]
  - Post procedural complication [None]
  - Cardiac operation [None]
  - Cardiac arrest [None]
